FAERS Safety Report 7141152-2 (Version None)
Quarter: 2010Q4

REPORT INFORMATION
  Report Type: 
  Country: None (occurrence: None)
  Receive Date: 20101122
  Receipt Date: 20101112
  Transmission Date: 20110411
  Serious: Yes (Other)
  Sender: FDA-Public Use
  Company Number: 2010US003810

PATIENT
  Age: 58 Year
  Sex: Female

DRUGS (8)
  1. AMEVIVE FOR IM (ALEFACEPT) INJECTION [Suspect]
     Indication: PSORIASIS
     Dosage: 15 MG, WEEKLY, INTRAMUSCULAR, 15 MG, WEEKLY, INTRAMUSCULAR
     Route: 030
     Dates: start: 20091209, end: 20100301
  2. AMEVIVE FOR IM (ALEFACEPT) INJECTION [Suspect]
     Indication: PSORIASIS
     Dosage: 15 MG, WEEKLY, INTRAMUSCULAR, 15 MG, WEEKLY, INTRAMUSCULAR
     Route: 030
     Dates: start: 20100616, end: 20100908
  3. SYNTHROID [Concomitant]
  4. LISINOPRIL [Concomitant]
  5. LIPITOR [Concomitant]
  6. ANTIHYPERTENSIVES PILL [Concomitant]
  7. CHOLESTEROL-AND TRIGLYCERIDE REDUCERS PILL [Concomitant]
  8. THYROID THERAPY PILL [Concomitant]

REACTIONS (9)
  - DIARRHOEA [None]
  - DIZZINESS [None]
  - DROP ATTACKS [None]
  - FALL [None]
  - FEELING COLD [None]
  - JOINT INJURY [None]
  - LOSS OF CONSCIOUSNESS [None]
  - NAUSEA [None]
  - VOMITING [None]
